FAERS Safety Report 14580008 (Version 1)
Quarter: 2018Q1

REPORT INFORMATION
  Report Type: Spontaneous
  Country: FI (occurrence: FI)
  Receive Date: 20180228
  Receipt Date: 20180228
  Transmission Date: 20180509
  Serious: Yes (Disabling)
  Sender: FDA-Public Use
  Company Number: FI-AMGEN-FINSP2018024562

PATIENT
  Age: 67 Year
  Sex: Male

DRUGS (5)
  1. XGEVA [Suspect]
     Active Substance: DENOSUMAB
     Indication: METASTASES TO BONE
     Dosage: UNK
     Route: 058
     Dates: start: 20151029, end: 20180201
  2. ENANTON [Concomitant]
     Active Substance: LEUPROLIDE ACETATE
     Dosage: UNK
     Route: 058
  3. CALCICHEW D3 FORTE [Concomitant]
     Active Substance: CALCIUM\CHOLECALCIFEROL
     Dosage: 2 DF, QD
     Route: 048
  4. DEXAMETASON [Concomitant]
     Active Substance: DEXAMETHASONE
     Dosage: 0.75 MG, QD
     Route: 048
  5. ZYTIGA [Concomitant]
     Active Substance: ABIRATERONE ACETATE
     Dosage: 1,G,DAILY
     Route: 048

REACTIONS (3)
  - Weight decreased [Unknown]
  - Fatigue [Unknown]
  - Osteonecrosis of jaw [Unknown]

NARRATIVE: CASE EVENT DATE: 2017
